FAERS Safety Report 8523055-1 (Version None)
Quarter: 2012Q3

REPORT INFORMATION
  Report Type: 
  Country: None (occurrence: None)
  Receive Date: 20120720
  Receipt Date: 20120716
  Transmission Date: 20120928
  Serious: Yes (Death)
  Sender: FDA-Public Use
  Company Number: SE-ROCHE-1088822

PATIENT
  Sex: Female
  Weight: 94 kg

DRUGS (11)
  1. ACTEMRA [Suspect]
     Indication: RHEUMATOID ARTHRITIS
     Route: 042
     Dates: start: 20120229
  2. WARFARIN SODIUM [Concomitant]
     Route: 048
  3. CALCICHEW D3 FORTE [Concomitant]
  4. DIMOR [Concomitant]
     Route: 048
  5. SODIUM POLYSTYRENE SULFONATE [Concomitant]
     Route: 048
  6. FUROSEMIDE [Concomitant]
     Route: 048
  7. ARANESP [Concomitant]
     Route: 058
  8. SODIUM BICARBONATE [Concomitant]
     Route: 048
     Dates: end: 20111201
  9. TRAMADOL HYDROCHLORIDE [Concomitant]
     Route: 048
  10. PREDNISOLONE [Concomitant]
     Route: 048
  11. ACETAMINOPHEN [Concomitant]
     Route: 048

REACTIONS (1)
  - CARDIAC ARREST [None]
